FAERS Safety Report 14450982 (Version 1)
Quarter: 2018Q1

REPORT INFORMATION
  Report Type: Spontaneous
  Country: US (occurrence: US)
  Receive Date: 20180129
  Receipt Date: 20180129
  Transmission Date: 20180509
  Serious: No
  Sender: FDA-Public Use
  Company Number: US-PFIZER INC-2018030284

PATIENT
  Age: 66 Year
  Sex: Female

DRUGS (7)
  1. XANAX XR [Suspect]
     Active Substance: ALPRAZOLAM
     Dosage: 3 MG, AS NEEDED
  2. XANAX XR [Suspect]
     Active Substance: ALPRAZOLAM
     Indication: PANIC DISORDER
     Dosage: 2 MG, 1X/DAY (2 MG IN THE MORNING)
  3. XANAX XR [Suspect]
     Active Substance: ALPRAZOLAM
     Dosage: 5 MG, DAILY
  4. ALPRAZOLAM. [Suspect]
     Active Substance: ALPRAZOLAM
     Indication: PANIC DISORDER
  5. XANAX XR [Suspect]
     Active Substance: ALPRAZOLAM
     Indication: STRESS
     Dosage: 1 MG, AS NEEDED
  6. XANAX XR [Suspect]
     Active Substance: ALPRAZOLAM
     Dosage: 2 MG, UNK
  7. ALPRAZOLAM. [Suspect]
     Active Substance: ALPRAZOLAM
     Indication: STRESS
     Dosage: 2 MG, UNK

REACTIONS (3)
  - Drug prescribing error [Unknown]
  - Drug ineffective [Unknown]
  - Mood swings [Unknown]
